FAERS Safety Report 23153382 (Version 1)
Quarter: 2023Q4

REPORT INFORMATION
  Report Type: Spontaneous
  Country: US (occurrence: US)
  Receive Date: 20231107
  Receipt Date: 20231107
  Transmission Date: 20240110
  Serious: No
  Sender: FDA-Public Use
  Company Number: US-BEH-2023164986

PATIENT
  Age: 12 Year
  Sex: Male

DRUGS (4)
  1. IDELVION [Suspect]
     Active Substance: COAGULATION FACTOR IX RECOMBINANT HUMAN
     Indication: Factor IX deficiency
     Dosage: 2300 INTERNATIONAL UNIT, QW
     Route: 042
     Dates: start: 202110
  2. IDELVION [Suspect]
     Active Substance: COAGULATION FACTOR IX RECOMBINANT HUMAN
     Indication: Factor IX deficiency
     Dosage: 2300 INTERNATIONAL UNIT, QW
     Route: 042
     Dates: start: 202110
  3. IDELVION [Suspect]
     Active Substance: COAGULATION FACTOR IX RECOMBINANT HUMAN
     Dosage: 2300 INTERNATIONAL UNIT, PRN
     Route: 042
     Dates: start: 202110
  4. IDELVION [Suspect]
     Active Substance: COAGULATION FACTOR IX RECOMBINANT HUMAN
     Dosage: 2300 INTERNATIONAL UNIT, PRN
     Route: 042
     Dates: start: 202110

REACTIONS (1)
  - Skin injury [Unknown]

NARRATIVE: CASE EVENT DATE: 20231025
